FAERS Safety Report 10003749 (Version 2)
Quarter: 2014Q1

REPORT INFORMATION
  Report Type: Report from Study
  Country: NL (occurrence: NL)
  Receive Date: 20140312
  Receipt Date: 20140326
  Transmission Date: 20141002
  Serious: Yes (Hospitalization)
  Sender: FDA-Public Use
  Company Number: PHHY2014NL029227

PATIENT
  Sex: Female

DRUGS (12)
  1. ACLASTA [Suspect]
     Indication: OSTEOPOROSIS
     Dosage: 5 MG 1 PER 52 WEEKS
     Route: 042
     Dates: start: 20120214
  2. ACLASTA [Suspect]
     Dosage: 5 MG 1 PER 52 WEEKS
     Route: 042
     Dates: start: 20140307
  3. PANTOZOLE [Concomitant]
     Dosage: 40 MG, UNK
  4. FUROSEMIDE [Concomitant]
     Dosage: 20 MG, UNK
  5. CALCIUM [Concomitant]
     Dosage: 500 MG, UNK
  6. VITAMIN D3 [Concomitant]
     Dosage: 800 MG, UNK
  7. MOVICOLON [Concomitant]
     Dosage: UNK
  8. ZYPREXA [Concomitant]
     Dosage: 7.5 MG, UNK
  9. SPIRONOLACTON [Concomitant]
     Dosage: 25 MG, UNK
  10. IPRAMOL [Concomitant]
     Dosage: UNK
     Route: 055
  11. THEOPHYLLINE [Concomitant]
     Dosage: 250 X 2, UNK
  12. FLIXOTIDE [Concomitant]
     Dosage: 2 DD

REACTIONS (1)
  - Chronic obstructive pulmonary disease [Unknown]
